FAERS Safety Report 10853711 (Version 1)
Quarter: 2015Q1

REPORT INFORMATION
  Report Type: Spontaneous
  Country: US (occurrence: US)
  Receive Date: 20150223
  Receipt Date: 20150223
  Transmission Date: 20150721
  Serious: Yes (Hospitalization)
  Sender: FDA-Public Use
  Company Number: US-ROCHE-1539270

PATIENT
  Age: 88 Year
  Sex: Female

DRUGS (2)
  1. TAMIFLU [Suspect]
     Active Substance: OSELTAMIVIR PHOSPHATE
     Indication: INFLUENZA
     Dosage: TOOK 2 PILLS FOR 2.5 DAYS
     Route: 065
     Dates: start: 20150210, end: 201502
  2. XELODA [Suspect]
     Active Substance: CAPECITABINE
     Indication: COLORECTAL CANCER
     Dosage: TAKES TWO PILLS TWICE A DAY
     Route: 065
     Dates: start: 20150205, end: 20150215

REACTIONS (9)
  - Influenza [Unknown]
  - Fatigue [Unknown]
  - Nausea [Unknown]
  - Sneezing [Unknown]
  - Dyspnoea [Unknown]
  - Dehydration [Unknown]
  - Diarrhoea [Unknown]
  - Abdominal pain upper [Unknown]
  - Rhinorrhoea [Unknown]

NARRATIVE: CASE EVENT DATE: 20150210
